FAERS Safety Report 22175295 (Version 1)
Quarter: 2023Q2

REPORT INFORMATION
  Report Type: Spontaneous
  Country: IT (occurrence: IT)
  Receive Date: 20230405
  Receipt Date: 20230405
  Transmission Date: 20230721
  Serious: Yes (Other)
  Sender: FDA-Public Use
  Company Number: None

PATIENT
  Age: 31 Year
  Sex: Female
  Weight: 70 kg

DRUGS (2)
  1. TYSABRI [Suspect]
     Active Substance: NATALIZUMAB
     Indication: Multiple sclerosis
     Dosage: EVERY 4 WEEKS
     Route: 050
     Dates: start: 20220422, end: 20221007
  2. SOLU-MEDROL [Concomitant]
     Active Substance: METHYLPREDNISOLONE SODIUM SUCCINATE
     Indication: Prophylaxis
     Dosage: MONTHLY ADMINISTRATION OF SOLUMEDROL 1 G AS TYSABRI PROPHYLACTIC THERAPY, TOTAL ADMINISTERED 3 G
     Route: 050
     Dates: start: 20220422, end: 20220617

REACTIONS (2)
  - Drug-induced liver injury [Not Recovered/Not Resolved]
  - Lymphocytosis [Not Recovered/Not Resolved]

NARRATIVE: CASE EVENT DATE: 20220805
